FAERS Safety Report 7481586-X (Version None)
Quarter: 2011Q2

REPORT INFORMATION
  Report Type: 
  Country: None (occurrence: None)
  Receive Date: 20110516
  Receipt Date: 20110505
  Transmission Date: 20111010
  Serious: Yes (Other)
  Sender: FDA-Public Use
  Company Number: CA-JNJFOC-20110410400

PATIENT
  Sex: Female

DRUGS (2)
  1. SIMPONI [Suspect]
     Route: 058
     Dates: start: 20110502
  2. SIMPONI [Suspect]
     Indication: RHEUMATOID ARTHRITIS
     Route: 058
     Dates: start: 20101123, end: 20110307

REACTIONS (2)
  - DRUG EXPOSURE DURING PREGNANCY [None]
  - ABORTION SPONTANEOUS [None]
